FAERS Safety Report 4283576-7 (Version None)
Quarter: 2004Q1

REPORT INFORMATION
  Report Type: 
  Country: None (occurrence: None)
  Receive Date: 20040202
  Receipt Date: 20030813
  Transmission Date: 20041129
  Serious: Yes (Life-Threatening)
  Sender: FDA-Public Use
  Company Number: JP-GLAXOSMITHKLINE-B0306686A

PATIENT
  Age: 72 Year
  Sex: Female
  Weight: 51 kg

DRUGS (4)
  1. ZANTAC [Suspect]
     Indication: PROPHYLAXIS
     Dosage: 200MG PER DAY
     Route: 042
     Dates: start: 20030801, end: 20030802
  2. ISEPAMICIN SULPHATE [Suspect]
     Indication: POSTOPERATIVE INFECTION
     Dosage: 200MG PER DAY
     Route: 042
     Dates: start: 20030801, end: 20030802
  3. BIAPENEM [Suspect]
     Indication: INFECTION PROPHYLAXIS
     Dosage: .3G PER DAY
     Route: 065
     Dates: start: 20030801, end: 20030801
  4. ISOTONIC SODIUM CHLORIDE [Concomitant]
     Dosage: 100ML PER DAY
     Route: 042
     Dates: start: 20030801, end: 20030802

REACTIONS (6)
  - ANAPHYLACTIC SHOCK [None]
  - COLD SWEAT [None]
  - DEPRESSED LEVEL OF CONSCIOUSNESS [None]
  - ERYTHEMA [None]
  - FLUSHING [None]
  - YAWNING [None]
